FAERS Safety Report 7812277-0 (Version None)
Quarter: 2011Q4

REPORT INFORMATION
  Report Type: 
  Country: None (occurrence: None)
  Receive Date: 20111013
  Receipt Date: 20111010
  Transmission Date: 20120403
  Serious: Yes (Hospitalization)
  Sender: FDA-Public Use
  Company Number: US-B.I. PHARMACEUTICALS,INC./RIDGEFIELD-2011-BP-23861BP

PATIENT
  Age: 77 Year
  Sex: Female

DRUGS (10)
  1. LANSOPRAZOLE/PREVICID [Concomitant]
  2. LUNESTA [Concomitant]
     Indication: SLEEP DISORDER THERAPY
  3. LEVOTHYROXINE SODIUM [Concomitant]
     Indication: THYROID DISORDER
  4. ZETIA [Concomitant]
     Indication: BLOOD CHOLESTEROL INCREASED
  5. LOSARTAN POTASSIUM [Concomitant]
     Indication: HYPERTENSION
  6. CALCIUM CARBONATE [Concomitant]
  7. IRON [Concomitant]
  8. PRADAXA [Suspect]
     Indication: ATRIAL FIBRILLATION
     Dosage: 300 MG
     Route: 048
     Dates: start: 20110912
  9. BISMUTH SUBSALICYLATE [Concomitant]
  10. ACIDOPHILUS [Concomitant]

REACTIONS (1)
  - MELAENA [None]
